FAERS Safety Report 7313615-8 (Version None)
Quarter: 2011Q1

REPORT INFORMATION
  Report Type: 
  Country: None (occurrence: None)
  Receive Date: 20110224
  Receipt Date: 20110224
  Transmission Date: 20110831
  Serious: No
  Sender: FDA-Public Use
  Company Number: None

PATIENT
  Sex: Male
  Weight: 77.1115 kg

DRUGS (1)
  1. TRIAD ALCOHOL SWABS [Suspect]
     Dates: start: 20090914

REACTIONS (3)
  - INJECTION SITE INFECTION [None]
  - WRONG TECHNIQUE IN DRUG USAGE PROCESS [None]
  - HYPERSENSITIVITY [None]
